FAERS Safety Report 14903213 (Version 1)
Quarter: 2018Q2

REPORT INFORMATION
  Report Type: Spontaneous
  Country: US (occurrence: US)
  Receive Date: 20180516
  Receipt Date: 20180516
  Transmission Date: 20180711
  Serious: No
  Sender: FDA-Public Use
  Company Number: US-SA-2017SA126620

PATIENT
  Age: 65 Year
  Sex: Female

DRUGS (3)
  1. TRESIBA [Concomitant]
     Active Substance: INSULIN DEGLUDEC
     Route: 065
  2. SOLOSTAR [Suspect]
     Active Substance: DEVICE
     Indication: TYPE 1 DIABETES MELLITUS
     Dosage: START DATE: COUPLE OF WEEKS
     Dates: start: 2017
  3. LANTUS SOLOSTAR [Suspect]
     Active Substance: INSULIN GLARGINE
     Indication: TYPE 1 DIABETES MELLITUS
     Dosage: START DATE: COUPLE OF WEEKS DOSE:16 UNIT(S)
     Route: 058
     Dates: start: 2017

REACTIONS (3)
  - Device issue [Unknown]
  - Injection site injury [Unknown]
  - Product use issue [Unknown]

NARRATIVE: CASE EVENT DATE: 2017
